FAERS Safety Report 17975942 (Version 2)
Quarter: 2020Q3

REPORT INFORMATION
  Report Type: Spontaneous
  Country: US (occurrence: US)
  Receive Date: 20200702
  Receipt Date: 20200827
  Transmission Date: 20201103
  Serious: Yes (Other)
  Sender: FDA-Public Use
  Company Number: NVSC2020US181414

PATIENT
  Sex: Female

DRUGS (1)
  1. TYKERB [Suspect]
     Active Substance: LAPATINIB DITOSYLATE
     Indication: NEOPLASM MALIGNANT
     Dosage: 250 MG
     Route: 065

REACTIONS (4)
  - Recurrent cancer [Unknown]
  - Metastases to ovary [Unknown]
  - Product odour abnormal [Unknown]
  - Diarrhoea [Unknown]
